FAERS Safety Report 8508965-3 (Version None)
Quarter: 2012Q3

REPORT INFORMATION
  Report Type: 
  Country: None (occurrence: None)
  Receive Date: 20120703
  Receipt Date: 20120622
  Transmission Date: 20120928
  Serious: Yes (Other)
  Sender: FDA-Public Use
  Company Number: AUR-APL-2012-02467

PATIENT
  Age: 62 Year
  Sex: Female
  Weight: 94.3482 kg

DRUGS (3)
  1. MELOXICAM [Suspect]
     Indication: ARTHRALGIA
     Dosage: 7.5 MG (7.5 MG, DAILY), ORAL
     Route: 048
  2. CELEBREX [Suspect]
     Indication: ARTHRITIS
     Dosage: (200 MG, OFF AND ON DAILY)
     Dates: start: 19970101
  3. JANUVIA [Concomitant]

REACTIONS (3)
  - KNEE ARTHROPLASTY [None]
  - DRUG INEFFECTIVE [None]
  - PRODUCT SUBSTITUTION ISSUE [None]
